FAERS Safety Report 18664925 (Version 2)
Quarter: 2025Q2

REPORT INFORMATION
  Report Type: Report from Study
  Country: CA (occurrence: CA)
  Receive Date: 20201225
  Receipt Date: 20250625
  Transmission Date: 20250716
  Serious: Yes (Other)
  Sender: TAKEDA
  Company Number: CA-TAKEDA-2019TUS048839

PATIENT
  Age: 64 Year
  Sex: Female

DRUGS (8)
  1. VEDOLIZUMAB [Suspect]
     Active Substance: VEDOLIZUMAB
     Indication: Crohn^s disease
  2. VEDOLIZUMAB [Suspect]
     Active Substance: VEDOLIZUMAB
  3. VEDOLIZUMAB [Suspect]
     Active Substance: VEDOLIZUMAB
  4. VEDOLIZUMAB [Suspect]
     Active Substance: VEDOLIZUMAB
  5. PURINETHOL [Concomitant]
     Active Substance: MERCAPTOPURINE
  6. EFFEXOR [Concomitant]
     Active Substance: VENLAFAXINE HYDROCHLORIDE
     Dosage: 300 MILLIGRAM, QD
     Dates: start: 2014
  7. WELLBUTRIN [Concomitant]
     Active Substance: BUPROPION HYDROCHLORIDE
     Dosage: 150 MILLIGRAM, QD
     Dates: start: 2016
  8. CORTISONE [Concomitant]
     Active Substance: CORTISONE
     Indication: Respiratory syncytial virus bronchitis

REACTIONS (8)
  - Crohn^s disease [Not Recovered/Not Resolved]
  - Abdominal hernia obstructive [Recovering/Resolving]
  - Mucous stools [Unknown]
  - Diarrhoea [Unknown]
  - Post procedural infection [Unknown]
  - Product dose omission issue [Unknown]
  - Abdominal pain [Unknown]
  - Influenza [Unknown]

NARRATIVE: CASE EVENT DATE: 20190815
